FAERS Safety Report 13009239 (Version 1)
Quarter: 2016Q4

REPORT INFORMATION
  Report Type: Spontaneous
  Country: US (occurrence: US)
  Receive Date: 20161208
  Receipt Date: 20161208
  Transmission Date: 20170207
  Serious: No
  Sender: FDA-Public Use
  Company Number: US-BAYER-2016-231969

PATIENT
  Sex: Female

DRUGS (1)
  1. CLIMARA [Suspect]
     Active Substance: ESTRADIOL
     Dosage: 0.025 MG
     Route: 062

REACTIONS (4)
  - Rash [Recovered/Resolved]
  - Product adhesion issue [Not Recovered/Not Resolved]
  - Drug administration error [Recovered/Resolved]
  - Drug dose omission [Not Recovered/Not Resolved]
